FAERS Safety Report 9202707 (Version 2)
Quarter: 2014Q1

REPORT INFORMATION
  Report Type: Spontaneous
  Country: IT (occurrence: IT)
  Receive Date: 20130401
  Receipt Date: 20140203
  Transmission Date: 20141002
  Serious: Yes (Other)
  Sender: FDA-Public Use
  Company Number: IT-MYLANLABS-2013S1006045

PATIENT
  Age: 82 Year
  Sex: Male

DRUGS (1)
  1. DONEZEPIL [Suspect]
     Indication: COGNITIVE DISORDER
     Route: 048
     Dates: start: 20130201, end: 20130301

REACTIONS (1)
  - Psychomotor hyperactivity [Recovered/Resolved]
